FAERS Safety Report 9373327 (Version 2)
Quarter: 2013Q3

REPORT INFORMATION
  Report Type: Spontaneous
  Country: FR (occurrence: FR)
  Receive Date: 20130627
  Receipt Date: 20130909
  Transmission Date: 20140515
  Serious: Yes (Hospitalization)
  Sender: FDA-Public Use
  Company Number: FR-TEVA-415721ISR

PATIENT
  Age: 83 Year
  Sex: Female

DRUGS (18)
  1. FUROSEMIDE TEVA 40 MG [Suspect]
     Dosage: 1 DOSAGE FORMS DAILY;
     Route: 048
  2. FUROSEMIDE TEVA 40 MG [Suspect]
     Dosage: 20 MILLIGRAM DAILY;
     Route: 048
  3. LEVOTHYROX 100 MICROG [Concomitant]
     Dosage: 1 DOSAGE FORMS DAILY;
  4. LEVOTHYROX 125 [Concomitant]
     Dosage: 1 DOSAGE FORMS DAILY;
     Route: 048
  5. UVEDOSE [Concomitant]
     Route: 048
  6. NEBIVOLOL 5 [Concomitant]
  7. HEMIGOXINE 0.125 [Concomitant]
     Dosage: 1 DOSAGE FORMS DAILY;
  8. LERCANIDIPINE 20 MG [Concomitant]
     Dosage: 1 DOSAGE FORMS DAILY;
  9. PRAVASTATINE 40 [Concomitant]
     Dosage: 1 DOSAGE FORMS DAILY;
  10. PREVISCAN [Concomitant]
     Dosage: .75 DOSAGE FORMS DAILY;
  11. GLIMEPIRIDE 4 [Concomitant]
  12. LANTUS [Concomitant]
     Dosage: 26 IU (INTERNATIONAL UNIT) DAILY;
  13. GLIMEPIRIDE 2 [Concomitant]
     Dates: end: 20130530
  14. CALCIDOSE 500 [Concomitant]
     Dosage: 4 DOSAGE FORMS DAILY;
  15. UNALFA [Concomitant]
     Dosage: 15 DROPS DAILY
  16. MAG 2 100 [Concomitant]
     Dosage: 3 DOSAGE FORMS DAILY;
  17. STAGID [Concomitant]
  18. GLIMEPIRIDE [Concomitant]

REACTIONS (3)
  - Oedema peripheral [Unknown]
  - Fall [Unknown]
  - Somnolence [Unknown]
